FAERS Safety Report 13047506 (Version 2)
Quarter: 2017Q1

REPORT INFORMATION
  Report Type: Spontaneous
  Country: US (occurrence: US)
  Receive Date: 20161220
  Receipt Date: 20170118
  Transmission Date: 20170428
  Serious: No
  Sender: FDA-Public Use
  Company Number: US-GILEAD-2016-0249853

PATIENT
  Sex: Female

DRUGS (1)
  1. AZTREONAM LYSINE [Suspect]
     Active Substance: AZTREONAM LYSINE
     Indication: BRONCHIECTASIS
     Dosage: 75 MG, UNK
     Route: 055
     Dates: start: 20161210

REACTIONS (6)
  - Total lung capacity decreased [Unknown]
  - Off label use [Not Recovered/Not Resolved]
  - Retching [Unknown]
  - Cough [Unknown]
  - Dry throat [Unknown]
  - Dry mouth [Unknown]
